FAERS Safety Report 18279650 (Version 1)
Quarter: 2020Q3

REPORT INFORMATION
  Report Type: Spontaneous
  Country: GB (occurrence: GB)
  Receive Date: 20200917
  Receipt Date: 20200917
  Transmission Date: 20201103
  Serious: Yes (Hospitalization)
  Sender: FDA-Public Use
  Company Number: GB-PFIZER INC-2020350875

PATIENT
  Age: 51 Year
  Sex: Male

DRUGS (9)
  1. ASPIRIN [ACETYLSALICYLIC ACID] [Concomitant]
     Active Substance: ASPIRIN
  2. ALFACALCIDOL [Concomitant]
     Active Substance: ALFACALCIDOL
  3. IRBESARTAN HYDROCHLORIDE [Concomitant]
     Active Substance: IRBESARTAN
  4. SIROLIMUS. [Suspect]
     Active Substance: SIROLIMUS
     Indication: PROPHYLAXIS AGAINST TRANSPLANT REJECTION
     Dosage: 2 MG, 1X/DAY
     Route: 048
     Dates: start: 20100501, end: 20200817
  5. DOXAZOSIN [Concomitant]
     Active Substance: DOXAZOSIN MESYLATE
  6. PREDNISOLONE. [Concomitant]
     Active Substance: PREDNISOLONE
  7. ATORVASTATIN [Concomitant]
     Active Substance: ATORVASTATIN
  8. AZATHIOPRINE. [Concomitant]
     Active Substance: AZATHIOPRINE
  9. AMLODIPINE [Concomitant]
     Active Substance: AMLODIPINE BESYLATE

REACTIONS (1)
  - Subdural haematoma [Not Recovered/Not Resolved]

NARRATIVE: CASE EVENT DATE: 20200815
